FAERS Safety Report 7596729-7 (Version None)
Quarter: 2011Q3

REPORT INFORMATION
  Report Type: 
  Country: None (occurrence: None)
  Receive Date: 20110708
  Receipt Date: 20110706
  Transmission Date: 20111222
  Serious: No
  Sender: FDA-Public Use
  Company Number: US-PFIZER INC-2011151794

PATIENT
  Sex: Male

DRUGS (5)
  1. ANAFRANIL [Concomitant]
     Dosage: 75 MG, 1X/DAY
  2. LISINOPRIL [Suspect]
     Indication: HYPERTENSION
     Dosage: 20 MG, 1X/DAY
     Route: 048
     Dates: start: 20110608
  3. PREDNISOLONE [Concomitant]
     Dosage: 60 MG, 1X/DAY
  4. LYRICA [Suspect]
     Indication: PAIN
     Dosage: 75 MG, 3X/DAY
     Route: 048
     Dates: start: 20110616, end: 20110616
  5. MINOCIN [Concomitant]
     Dosage: UNK

REACTIONS (2)
  - RASH [None]
  - BLISTER [None]
